FAERS Safety Report 7852214-6 (Version None)
Quarter: 2011Q4

REPORT INFORMATION
  Report Type: 
  Country: None (occurrence: None)
  Receive Date: 20111026
  Receipt Date: 20111013
  Transmission Date: 20120403
  Serious: Yes (Hospitalization, Other)
  Sender: FDA-Public Use
  Company Number: US-ELI_LILLY_AND_COMPANY-US201005000918

PATIENT
  Sex: Female

DRUGS (16)
  1. STOOL SOFTENER [Concomitant]
  2. FORTEO [Suspect]
     Indication: OSTEOPOROSIS
     Dosage: 20 UG, DAILY (1/D)
     Dates: start: 20100402
  3. FISH OIL [Concomitant]
  4. CIPROFLOXACIN [Concomitant]
     Indication: URINARY TRACT INFECTION
  5. PREMARIN [Concomitant]
     Route: 067
  6. MULTIVITAMIN [Concomitant]
  7. FORTEO [Suspect]
     Dosage: 20 UG, DAILY (1/D)
     Dates: start: 20100402
  8. CALCIUM SODIUM LACTATE [Concomitant]
  9. CLONAZEPAM [Concomitant]
     Dosage: 0.05 MG, UNK
  10. TYLENOL-500 [Concomitant]
  11. ESTROGENIC SUBSTANCE [Concomitant]
  12. CALCIUM PHOSPHATE [Concomitant]
  13. ERGOCALCIFEROL [Concomitant]
  14. ACETAMINOPHEN [Concomitant]
  15. ASCORBIC ACID [Concomitant]
     Dosage: 1000 MG, 3/D
  16. INFLUENZA VACCINE [Concomitant]

REACTIONS (15)
  - CYSTOCELE [None]
  - FATIGUE [None]
  - PAIN IN EXTREMITY [None]
  - TRANSFUSION [None]
  - NAUSEA [None]
  - URINARY TRACT INFECTION [None]
  - HEART RATE INCREASED [None]
  - BLOOD URINE [None]
  - HYPOTENSION [None]
  - BLADDER TRANSITIONAL CELL CARCINOMA STAGE I [None]
  - RECTOCELE [None]
  - INJECTION SITE PAIN [None]
  - DEVICE MISUSE [None]
  - INJECTION SITE INDURATION [None]
  - ASTHENIA [None]
